FAERS Safety Report 10347774 (Version 1)
Quarter: 2014Q3

REPORT INFORMATION
  Report Type: Spontaneous
  Country: US (occurrence: US)
  Receive Date: 20140729
  Receipt Date: 20140729
  Transmission Date: 20150326
  Serious: Yes (Hospitalization, Other)
  Sender: FDA-Public Use
  Company Number: US-ACTAVIS-2014-16160

PATIENT
  Age: 80 Year
  Sex: Female

DRUGS (2)
  1. GABAPENTIN. [Concomitant]
     Active Substance: GABAPENTIN
     Indication: PAIN
     Dosage: UNK
     Route: 048
  2. DILAUDID [Suspect]
     Active Substance: HYDROMORPHONE HYDROCHLORIDE
     Indication: POST LAMINECTOMY SYNDROME
     Dosage: 40 ML, SINGLE, 33 ML WAS ESILY ASPIRATED
     Route: 051

REACTIONS (7)
  - Accidental overdose [Recovered/Resolved]
  - Loss of consciousness [Recovered/Resolved]
  - Miosis [Recovered/Resolved]
  - Unresponsive to stimuli [Recovered/Resolved]
  - Dizziness [Recovered/Resolved]
  - Hypopnoea [Recovered/Resolved]
  - Drug administration error [Recovered/Resolved]
